FAERS Safety Report 7197386-4 (Version None)
Quarter: 2010Q4

REPORT INFORMATION
  Report Type: 
  Country: None (occurrence: None)
  Receive Date: 20101213
  Receipt Date: 20101126
  Transmission Date: 20110411
  Serious: Yes (Other)
  Sender: FDA-Public Use
  Company Number: 2010MA005125

PATIENT
  Age: 71 Year
  Sex: Female

DRUGS (9)
  1. DICLOFENAC SODIUM [Suspect]
     Indication: PAIN IN EXTREMITY
  2. PREDNISOLONE [Suspect]
     Indication: MYALGIA
     Dosage: 40 MG; QD; PO
     Route: 048
     Dates: start: 20100301
  3. OMEPRAZOLE [Concomitant]
  4. ALENDRONIC ACID [Concomitant]
  5. ADCAL-D3 [Concomitant]
  6. FUROSEMIDE [Concomitant]
  7. AMITRIPTYLINE [Concomitant]
  8. FLOXACILLIN SODIUM [Concomitant]
  9. AMOXICILLIN [Concomitant]

REACTIONS (15)
  - ABDOMINAL DISTENSION [None]
  - ASTHENIA [None]
  - ASTHMA [None]
  - DRUG INEFFECTIVE [None]
  - DYSPNOEA [None]
  - ERYTHEMA [None]
  - INFECTION [None]
  - OEDEMA PERIPHERAL [None]
  - PRURITUS [None]
  - QUALITY OF LIFE DECREASED [None]
  - SWELLING FACE [None]
  - TREATMENT NONCOMPLIANCE [None]
  - VEIN DISORDER [None]
  - VISUAL ACUITY REDUCED [None]
  - WEIGHT INCREASED [None]
